FAERS Safety Report 5208019-8 (Version None)
Quarter: 2007Q1

REPORT INFORMATION
  Report Type: 
  Country: None (occurrence: None)
  Receive Date: 20070115
  Receipt Date: 20070108
  Transmission Date: 20070707
  Serious: Yes (Life-Threatening, Hospitalization)
  Sender: FDA-Public Use
  Company Number: GB-ELI_LILLY_AND_COMPANY-GB200701001168

PATIENT
  Age: 77 Year
  Sex: Female
  Weight: 57 kg

DRUGS (9)
  1. ZYPREXA [Suspect]
     Indication: SCHIZOPHRENIA
     Dosage: 12.5 MG, DAILY (1/D)
     Route: 048
     Dates: start: 20060912, end: 20060913
  2. ZYPREXA [Suspect]
     Route: 048
     Dates: start: 20060926, end: 20061124
  3. CITALOPRAM HYDROBROMIDE [Concomitant]
     Indication: DEPRESSION
     Dosage: 40 MG, DAILY (1/D)
     Route: 048
     Dates: end: 20061120
  4. MIRTAZAPINE [Concomitant]
     Indication: DEPRESSION
     Dosage: 30 MG, DAILY (1/D)
     Route: 048
     Dates: start: 20060830, end: 20061120
  5. ALENDRONIC ACID [Concomitant]
     Dosage: 70 MG, WEEKLY (1/W)
     Route: 048
  6. BENDROFLUMETHIAZIDE [Concomitant]
     Indication: HYPERTENSION
     Dosage: 2.5 MG, DAILY (1/D)
     Route: 048
  7. MOVICOL [Concomitant]
     Indication: CONSTIPATION
     Dosage: 1 D/F, 2/D
     Route: 048
  8. SOFRADEX [Concomitant]
     Indication: OTITIS EXTERNA
     Dosage: 3 D/F, 3/D
     Route: 001
     Dates: start: 20061115, end: 20061120
  9. ZOPICLONE [Concomitant]
     Indication: SEDATION
     Dosage: 3.75 MG, DAILY (1/D)
     Route: 048

REACTIONS (8)
  - BRADYCARDIA [None]
  - BUNDLE BRANCH BLOCK RIGHT [None]
  - CARDIAC ARREST [None]
  - ELECTROCARDIOGRAM QT PROLONGED [None]
  - ELECTROMECHANICAL DISSOCIATION [None]
  - LOSS OF CONSCIOUSNESS [None]
  - SYNCOPE [None]
  - VENTRICULAR TACHYCARDIA [None]
